FAERS Safety Report 6589460-8 (Version None)
Quarter: 2010Q1

REPORT INFORMATION
  Report Type: 
  Country: None (occurrence: None)
  Receive Date: 20100218
  Receipt Date: 20100208
  Transmission Date: 20100710
  Serious: Yes (Other)
  Sender: FDA-Public Use
  Company Number: US-MERCK-1002USA01253

PATIENT
  Sex: Female

DRUGS (1)
  1. FOSAMAX [Suspect]
     Route: 048

REACTIONS (8)
  - ARTHROPATHY [None]
  - CARDIAC DISORDER [None]
  - GALLBLADDER DISORDER [None]
  - GOUTY ARTHRITIS [None]
  - MUSCLE SPASMS [None]
  - OESOPHAGEAL DISORDER [None]
  - STRESS [None]
  - THYROID DISORDER [None]
